FAERS Safety Report 9661268 (Version 1)
Quarter: 2013Q4

REPORT INFORMATION
  Report Type: Spontaneous
  Country: JP (occurrence: JP)
  Receive Date: 20131031
  Receipt Date: 20131031
  Transmission Date: 20140711
  Serious: Yes (Other)
  Sender: FDA-Public Use
  Company Number: JP-EISAI INC-E2090-02950-SPO-JP

PATIENT
  Sex: Male

DRUGS (3)
  1. TRERIEF [Suspect]
     Indication: PARKINSON^S DISEASE
     Route: 048
  2. ARTANE [Suspect]
     Indication: PRODUCT USED FOR UNKNOWN INDICATION
     Dosage: UNKNOWN
     Route: 048
  3. LEVODOPA [Concomitant]
     Dosage: 450 MG/DAY

REACTIONS (1)
  - Delirium [Not Recovered/Not Resolved]
